FAERS Safety Report 18570030 (Version 1)
Quarter: 2020Q4

REPORT INFORMATION
  Report Type: Spontaneous
  Country: US (occurrence: US)
  Receive Date: 20201202
  Receipt Date: 20201202
  Transmission Date: 20210114
  Serious: No
  Sender: FDA-Public Use
  Company Number: US-PFIZER INC-2020194887

PATIENT
  Age: 45 Year
  Sex: Female

DRUGS (1)
  1. XELJANZ [Suspect]
     Active Substance: TOFACITINIB CITRATE
     Indication: RHEUMATOID ARTHRITIS
     Dosage: 5 MG, 2X/DAY
     Route: 048
     Dates: start: 201910, end: 2020

REACTIONS (8)
  - Dry skin [Unknown]
  - Muscle strain [Unknown]
  - Neuralgia [Unknown]
  - Herpes zoster [Unknown]
  - Skin lesion [Recovered/Resolved]
  - Hair texture abnormal [Unknown]
  - Drug ineffective [Unknown]
  - Lip dry [Unknown]

NARRATIVE: CASE EVENT DATE: 2019
